FAERS Safety Report 6505219-1 (Version None)
Quarter: 2009Q4

REPORT INFORMATION
  Report Type: 
  Country: None (occurrence: None)
  Receive Date: 20091201
  Receipt Date: 20090804
  Transmission Date: 20100525
  Serious: Yes (Hospitalization, Other)
  Sender: FDA-Public Use
  Company Number: 2007-165246-NL

PATIENT
  Age: 41 Year
  Sex: Female

DRUGS (13)
  1. NUVARING [Suspect]
     Indication: CONTRACEPTION
     Dosage: 1 DF;QM
     Dates: start: 20030901, end: 20050926
  2. TOPAMAX [Concomitant]
  3. AMITRIPTYLINE HCL [Concomitant]
  4. TYLENOL-500 [Concomitant]
  5. NASACORT AQ [Concomitant]
  6. ZITHROMAX [Concomitant]
  7. TAMIFLU [Concomitant]
  8. SKELAXIN [Concomitant]
  9. NEURONTIN [Concomitant]
  10. DICLOFENAC SODIUM [Concomitant]
  11. VIOXX [Concomitant]
  12. VALTREX [Concomitant]
  13. MAXALT-MLT [Concomitant]

REACTIONS (3)
  - ATELECTASIS [None]
  - CEREBROVASCULAR ACCIDENT [None]
  - HEPATIC ENZYME INCREASED [None]
